FAERS Safety Report 9018304 (Version 1)
Quarter: 2013Q1

REPORT INFORMATION
  Report Type: Spontaneous
  Country: US (occurrence: None)
  Receive Date: 20130111
  Receipt Date: 20130111
  Transmission Date: 20140127
  Serious: Yes (Hospitalization)
  Sender: FDA-Public Use
  Company Number: None

PATIENT
  Age: 40 Year
  Sex: Female
  Weight: 80 kg

DRUGS (7)
  1. ACTEMRA [Suspect]
     Indication: IMMUNE TOLERANCE INDUCTION
     Dates: start: 20120810
  2. LOVASTATIN [Concomitant]
  3. NEURONTIN [Concomitant]
  4. CARDIZEM [Concomitant]
  5. ZOLOFT [Concomitant]
  6. RENVELA [Concomitant]
  7. SENSIPAR [Concomitant]

REACTIONS (5)
  - Myalgia [None]
  - Pneumonia [None]
  - Fluid overload [None]
  - Pulmonary congestion [None]
  - Cardiac arrest [None]
